FAERS Safety Report 22141921 (Version 4)
Quarter: 2024Q3

REPORT INFORMATION
  Report Type: Spontaneous
  Country: US (occurrence: US)
  Receive Date: 20230327
  Receipt Date: 20240911
  Transmission Date: 20241017
  Serious: Yes (Hospitalization, Other)
  Sender: CELLTRION
  Company Number: US-CELLTRION INC.-2023US006364

PATIENT

DRUGS (3)
  1. INFLECTRA [Suspect]
     Active Substance: INFLIXIMAB-DYYB
     Indication: Crohn^s disease
     Dosage: 5 MG/KILO EVERY 4 WEEKS
     Route: 065
     Dates: start: 20220819, end: 202212
  2. INFLECTRA [Suspect]
     Active Substance: INFLIXIMAB-DYYB
     Indication: Pyoderma gangrenosum
     Dosage: 10 MG/KG, EVERY 4 WEEKS
     Route: 065
     Dates: start: 202212, end: 20230223
  3. PREDNISONE [Concomitant]
     Active Substance: PREDNISONE
     Dosage: UNK
     Dates: start: 20220819, end: 202302

REACTIONS (14)
  - Stoma site haemorrhage [Unknown]
  - Pyoderma [Unknown]
  - Confusional state [Unknown]
  - Dyspnoea [Unknown]
  - Bronchopulmonary aspergillosis [Unknown]
  - Pneumonia [Unknown]
  - Condition aggravated [Not Recovered/Not Resolved]
  - Plantar fasciitis [Unknown]
  - Contusion [Unknown]
  - Paraesthesia [Not Recovered/Not Resolved]
  - Hypoaesthesia [Not Recovered/Not Resolved]
  - Pain in extremity [Unknown]
  - Pain [Recovering/Resolving]
  - Intentional product use issue [Unknown]
